FAERS Safety Report 25730944 (Version 1)
Quarter: 2025Q3

REPORT INFORMATION
  Report Type: Spontaneous
  Country: US (occurrence: None)
  Receive Date: 20250826
  Receipt Date: 20250826
  Transmission Date: 20251020
  Serious: Yes (Life-Threatening)
  Sender: FDA-CTU
  Company Number: None

PATIENT
  Age: 23 Year
  Sex: Female
  Weight: 54 kg

DRUGS (5)
  1. TRINTELLIX [Suspect]
     Active Substance: VORTIOXETINE HYDROBROMIDE
     Indication: Depression
     Dates: start: 20220902, end: 20220906
  2. LAMICTAL [Concomitant]
     Active Substance: LAMOTRIGINE
  3. methlynphendite [Concomitant]
  4. BUSPIRONE [Concomitant]
     Active Substance: BUSPIRONE HYDROCHLORIDE
  5. TRAZODONE [Concomitant]
     Active Substance: TRAZODONE HYDROCHLORIDE

REACTIONS (6)
  - Suicidal ideation [None]
  - Restless legs syndrome [None]
  - Insomnia [None]
  - Mental status changes [None]
  - Therapy cessation [None]
  - Quality of life decreased [None]

NARRATIVE: CASE EVENT DATE: 20220902
